FAERS Safety Report 25750863 (Version 1)
Quarter: 2025Q3

REPORT INFORMATION
  Report Type: Spontaneous
  Country: US (occurrence: None)
  Receive Date: 20250829
  Receipt Date: 20250829
  Transmission Date: 20251021
  Serious: Yes (Other)
  Sender: FDA-CTU
  Company Number: None

PATIENT
  Age: 69 Year
  Sex: Female
  Weight: 50.2 kg

DRUGS (3)
  1. CARVYKTI [Suspect]
     Active Substance: CILTACABTAGENE AUTOLEUCEL
     Indication: Plasma cell myeloma refractory
     Route: 042
     Dates: start: 20240131, end: 20240131
  2. FLUDARABINE [Suspect]
     Active Substance: FLUDARABINE PHOSPHATE
  3. CYCLOPHOSPHAMIDE [Suspect]
     Active Substance: CYCLOPHOSPHAMIDE

REACTIONS (16)
  - Haemophilus test positive [None]
  - Hypoxia [None]
  - Cytokine release syndrome [None]
  - Liver function test abnormal [None]
  - Lymphocytosis [None]
  - Fatigue [None]
  - Fatigue [None]
  - Arthralgia [None]
  - Arthralgia [None]
  - Paraesthesia [None]
  - Neutropenia [None]
  - Muscular weakness [None]
  - Gait disturbance [None]
  - Tremor [None]
  - Reduced facial expression [None]
  - Bradykinesia [None]

NARRATIVE: CASE EVENT DATE: 20250829
